FAERS Safety Report 23037950 (Version 1)
Quarter: 2023Q4

REPORT INFORMATION
  Report Type: Spontaneous
  Country: GB (occurrence: GB)
  Receive Date: 20231006
  Receipt Date: 20231006
  Transmission Date: 20240109
  Serious: Yes (Other)
  Sender: FDA-Public Use
  Company Number: None

PATIENT
  Age: 61 Year
  Sex: Male

DRUGS (6)
  1. MEMANTINE [Suspect]
     Active Substance: MEMANTINE
     Indication: Dementia
     Route: 065
     Dates: end: 20230830
  2. AMLODIPINE [Concomitant]
     Active Substance: AMLODIPINE BESYLATE
     Indication: Product used for unknown indication
     Dosage: UNKNOWN
     Route: 065
  3. DONEPEZIL [Concomitant]
     Active Substance: DONEPEZIL
     Indication: Dementia
     Dosage: UNKNOWN
     Route: 065
  4. INDAPAMIDE [Concomitant]
     Active Substance: INDAPAMIDE
     Indication: Product used for unknown indication
     Dosage: UNKNOWN
     Route: 065
  5. RAMIPRIL [Concomitant]
     Active Substance: RAMIPRIL
     Indication: Product used for unknown indication
     Dosage: UNKNOWN
     Route: 065
  6. SERTRALINE [Concomitant]
     Active Substance: SERTRALINE HYDROCHLORIDE
     Indication: Depression
     Dosage: UNKNOWN
     Route: 065

REACTIONS (2)
  - Tardive dyskinesia [Recovered/Resolved with Sequelae]
  - Myoclonus [Recovered/Resolved with Sequelae]
